FAERS Safety Report 5752176-1 (Version None)
Quarter: 2008Q2

REPORT INFORMATION
  Report Type: 
  Country: None (occurrence: None)
  Receive Date: 20080527
  Receipt Date: 20080515
  Transmission Date: 20081010
  Serious: Yes (Death)
  Sender: FDA-Public Use
  Company Number: 20085144

PATIENT
  Age: 27 Year
  Sex: Male

DRUGS (1)
  1. LIORESAL [Suspect]
     Indication: MUSCLE SPASTICITY
     Dosage: UNK MCG, DAILY INTRATHECAL
     Route: 037

REACTIONS (7)
  - CARDIO-RESPIRATORY ARREST [None]
  - DRUG WITHDRAWAL SYNDROME [None]
  - HYPERTENSION [None]
  - HYPERTHERMIA [None]
  - INFLUENZA LIKE ILLNESS [None]
  - MALAISE [None]
  - MEDICAL DEVICE COMPLICATION [None]
